FAERS Safety Report 8638781 (Version 3)
Quarter: 2013Q4

REPORT INFORMATION
  Report Type: Spontaneous
  Country: JP (occurrence: JP)
  Receive Date: 20120627
  Receipt Date: 20131031
  Transmission Date: 20140711
  Serious: Yes (Other)
  Sender: FDA-Public Use
  Company Number: JP-009507513-1206USA04154

PATIENT
  Age: 10 Month
  Sex: Female

DRUGS (1)
  1. FAMOTIDINE [Suspect]
     Dosage: 0.5 ?G/KG, UNK
     Route: 048

REACTIONS (2)
  - PFAPA syndrome [Unknown]
  - Drug ineffective for unapproved indication [Unknown]
